FAERS Safety Report 10082229 (Version 3)
Quarter: 2014Q2

REPORT INFORMATION
  Report Type: Spontaneous
  Country: US (occurrence: US)
  Receive Date: 20140416
  Receipt Date: 20140521
  Transmission Date: 20141212
  Serious: Yes (Hospitalization, Other)
  Sender: FDA-Public Use
  Company Number: US-BAXTER-2014BAX017513

PATIENT
  Sex: Male

DRUGS (4)
  1. DIANEAL LOW CALCIUM [Suspect]
     Indication: PERITONEAL DIALYSIS
     Route: 033
  2. DIANEAL LOW CALCIUM [Suspect]
     Indication: PERITONEAL DIALYSIS
     Route: 033
  3. DIANEAL PD2 [Suspect]
     Indication: PERITONEAL DIALYSIS
     Route: 033
  4. DIANEAL PD2 [Suspect]
     Indication: RENAL FAILURE CHRONIC
     Route: 033

REACTIONS (7)
  - Pain in extremity [Recovered/Resolved]
  - Parathyroid gland enlargement [Recovered/Resolved]
  - Dizziness [Recovered/Resolved]
  - Electrolyte imbalance [Recovered/Resolved]
  - Confusional state [Recovered/Resolved]
  - Hypotension [Unknown]
  - Blood parathyroid hormone increased [Recovered/Resolved]
